FAERS Safety Report 7597738-4 (Version None)
Quarter: 2011Q3

REPORT INFORMATION
  Report Type: 
  Country: None (occurrence: None)
  Receive Date: 20110708
  Receipt Date: 20110701
  Transmission Date: 20111222
  Serious: Yes (Death)
  Sender: FDA-Public Use
  Company Number: JP-GLAXOSMITHKLINE-B0725992A

PATIENT
  Sex: Female
  Weight: 38 kg

DRUGS (14)
  1. PROMACTA [Suspect]
     Indication: IDIOPATHIC THROMBOCYTOPENIC PURPURA
     Dosage: 12.5MG PER DAY
     Route: 048
     Dates: start: 20110425, end: 20110501
  2. LEVOFLOXACIN [Concomitant]
     Dosage: 500MG PER DAY
     Route: 048
  3. PREDNISOLONE [Concomitant]
     Dosage: 10MG PER DAY
     Route: 048
  4. VITAMEDIN [Concomitant]
     Route: 042
     Dates: start: 20110422, end: 20110426
  5. LENDORMIN [Concomitant]
     Dosage: .25MG PER DAY
     Route: 048
  6. LAC B [Concomitant]
     Dosage: 3G PER DAY
     Route: 048
  7. MEDICON [Concomitant]
     Dosage: 45MG PER DAY
     Route: 048
  8. LACTEC D [Concomitant]
     Route: 042
     Dates: start: 20110422, end: 20110426
  9. FUROSEMIDE [Concomitant]
     Dosage: 20MG PER DAY
     Route: 048
  10. MEROPENEM [Concomitant]
     Route: 042
     Dates: start: 20110422, end: 20110423
  11. SELBEX [Concomitant]
     Dosage: 150MG PER DAY
     Route: 048
  12. LEVOTHYROXINE SODIUM [Concomitant]
     Dosage: 50MG PER DAY
     Route: 048
  13. ALOSITOL [Concomitant]
     Dosage: 100MG PER DAY
     Route: 048
  14. PURSENNID [Concomitant]
     Dosage: 24MG PER DAY
     Route: 048

REACTIONS (2)
  - CARDIO-RESPIRATORY ARREST [None]
  - SUDDEN DEATH [None]
